FAERS Safety Report 6148827-2 (Version None)
Quarter: 2009Q2

REPORT INFORMATION
  Report Type: 
  Country: None (occurrence: None)
  Receive Date: 20090406
  Receipt Date: 20090331
  Transmission Date: 20091009
  Serious: Yes (Hospitalization)
  Sender: FDA-Public Use
  Company Number: TCI2009A01000

PATIENT
  Age: 74 Year
  Sex: Female

DRUGS (1)
  1. GEFARNATE (GEFARNATE) [Suspect]
     Dosage: (50MG) ORAL
     Route: 048
     Dates: start: 20080612

REACTIONS (2)
  - GASTRIC HAEMORRHAGE [None]
  - GASTRIC ULCER [None]
